FAERS Safety Report 8781307 (Version 1)
Quarter: 2012Q4

REPORT INFORMATION
  Report Type: Report from Study
  Country: FR (occurrence: FR)
  Receive Date: 20120913
  Receipt Date: 20120913
  Transmission Date: 20130627
  Serious: Yes (Hospitalization, Other)
  Sender: FDA-Public Use
  Company Number: FR-ROCHE-1115782

PATIENT
  Age: 30 Year
  Sex: Female
  Weight: 58 kg

DRUGS (15)
  1. ROACTEMRA [Suspect]
     Indication: RHEUMATOID ARTHRITIS
     Route: 042
     Dates: start: 20100616
  2. METHOTREXATE [Suspect]
     Indication: RHEUMATOID ARTHRITIS
     Route: 065
     Dates: start: 20100715, end: 20110608
  3. CORTANCYL [Concomitant]
     Indication: RHEUMATOID ARTHRITIS
     Route: 048
  4. CRESTOR [Concomitant]
  5. ZANIDIP [Concomitant]
  6. XANAX [Concomitant]
  7. STABLON [Concomitant]
  8. STRESAM [Concomitant]
  9. HYPERIUM [Concomitant]
  10. OGAST [Concomitant]
  11. ALDACTONE [Concomitant]
  12. COKENZEN [Concomitant]
  13. NIFLURIL [Concomitant]
  14. SPECIAFOLDINE [Concomitant]
     Route: 065
  15. TRAMADOL [Concomitant]

REACTIONS (10)
  - Leukopenia [Not Recovered/Not Resolved]
  - Hypertension [Recovered/Resolved]
  - Lung infection [Recovered/Resolved]
  - Herpes zoster [Recovered/Resolved]
  - Hyperparathyroidism secondary [Not Recovered/Not Resolved]
  - Thrombocytopenia [Not Recovered/Not Resolved]
  - Bartholinitis [Recovered/Resolved]
  - Alopecia [Recovered/Resolved]
  - Blood bilirubin abnormal [Not Recovered/Not Resolved]
  - Vitamin D deficiency [Not Recovered/Not Resolved]
